FAERS Safety Report 23145206 (Version 1)
Quarter: 2023Q4

REPORT INFORMATION
  Report Type: Report from Study
  Country: FR (occurrence: FR)
  Receive Date: 20231103
  Receipt Date: 20231103
  Transmission Date: 20240110
  Serious: Yes (Death, Other)
  Sender: FDA-Public Use
  Company Number: FR-JNJFOC-20231071750

PATIENT
  Age: 75 Year
  Sex: Male

DRUGS (3)
  1. BORTEZOMIB [Suspect]
     Active Substance: BORTEZOMIB
     Indication: Plasma cell myeloma
     Dosage: 1.3 MILLIGRAM/KILOGRAM,1 DOSE(S)/WEEK 4 WEEK(S)/CYCLE
     Route: 065
     Dates: start: 20220113
  2. MELPHALAN [Suspect]
     Active Substance: MELPHALAN
     Indication: Plasma cell myeloma
     Dosage: 11.8 MG/DOSE 2 DOSES /WEEK 2 WEEK(S)/CYCLE
     Route: 065
     Dates: end: 20220113
  3. VENETOCLAX [Suspect]
     Active Substance: VENETOCLAX
     Indication: Plasma cell myeloma
     Dosage: 50 MG/DOSE 7 DOSES/WEEK 3 WEEK(S)/CYCLE
     Route: 065
     Dates: end: 20220113

REACTIONS (3)
  - Plasma cell myeloma [Fatal]
  - Intentional product use issue [Unknown]
  - Off label use [Unknown]
